FAERS Safety Report 5137463-2 (Version None)
Quarter: 2006Q4

REPORT INFORMATION
  Report Type: 
  Country: None (occurrence: None)
  Receive Date: 20061030
  Receipt Date: 20051107
  Transmission Date: 20070319
  Serious: No
  Sender: FDA-Public Use
  Company Number: US-GLAXOSMITHKLINE-A0581228A

PATIENT
  Sex: Female

DRUGS (2)
  1. ADVAIR HFA [Suspect]
     Indication: DRUG USE FOR UNKNOWN INDICATION
     Dosage: 1PUFF UNKNOWN
     Route: 055
  2. UNKNOWN [Concomitant]

REACTIONS (4)
  - ANXIETY [None]
  - HEART RATE INCREASED [None]
  - PANIC REACTION [None]
  - THINKING ABNORMAL [None]
